FAERS Safety Report 22399386 (Version 1)
Quarter: 2023Q2

REPORT INFORMATION
  Report Type: Spontaneous
  Country: GB (occurrence: GB)
  Receive Date: 20230602
  Receipt Date: 20230602
  Transmission Date: 20230722
  Serious: Yes (Hospitalization, Other)
  Sender: FDA-Public Use
  Company Number: None

PATIENT
  Age: 11 Year
  Sex: Female
  Weight: 48 kg

DRUGS (1)
  1. FENFLURAMINE HYDROCHLORIDE [Suspect]
     Active Substance: FENFLURAMINE HYDROCHLORIDE
     Indication: Seizure
     Dosage: 2.2MLS TWICE A DAY
     Dates: start: 20230424

REACTIONS (3)
  - Fall [Recovering/Resolving]
  - Wrist fracture [Unknown]
  - Soft tissue disorder [Unknown]

NARRATIVE: CASE EVENT DATE: 20230401
